FAERS Safety Report 9221534 (Version 1)
Quarter: 2013Q2

REPORT INFORMATION
  Report Type: Spontaneous
  Country: US (occurrence: None)
  Receive Date: 20130408
  Receipt Date: 20130408
  Transmission Date: 20140414
  Serious: Yes (Other)
  Sender: FDA-Public Use
  Company Number: None

PATIENT
  Age: 62 Year
  Sex: Male
  Weight: 82.1 kg

DRUGS (1)
  1. SYSTANE [Suspect]
     Indication: ASTHENOPIA
     Dosage: 2 DROPS, 1 TIME
     Dates: start: 20130404, end: 20130404

REACTIONS (1)
  - Vision blurred [None]
